FAERS Safety Report 8977873 (Version 1)
Quarter: 2012Q4

REPORT INFORMATION
  Report Type: 
  Country: TW (occurrence: TW)
  Receive Date: 20121220
  Receipt Date: 20121220
  Transmission Date: 20130627
  Serious: Yes (Hospitalization)
  Sender: FDA-Public Use
  Company Number: PHHO2012TW017618

PATIENT
  Age: 44 Year
  Sex: Female
  Weight: 65 kg

DRUGS (6)
  1. BLINDED AFINITOR [Suspect]
     Indication: BREAST CANCER METASTATIC
     Dosage: Code not broken
     Route: 048
     Dates: start: 20091126
  2. BLINDED NO TREATMENT RECEIVED [Suspect]
     Indication: BREAST CANCER METASTATIC
     Dosage: Code not broken
     Route: 048
     Dates: start: 20091126
  3. BLINDED PLACEBO [Suspect]
     Indication: BREAST CANCER METASTATIC
     Dosage: Code not broken
     Route: 048
     Dates: start: 20091126
  4. COMPARATOR TRASTUZUMAB [Suspect]
     Indication: BREAST CANCER METASTATIC
     Dosage: 260 mg, UNK
     Route: 042
     Dates: start: 20091126
  5. COMPARATOR TRASTUZUMAB [Suspect]
     Dosage: 130 mg, OW
     Route: 042
     Dates: start: 20091203
  6. COMPARATOR PACLITAXEL [Suspect]
     Indication: BREAST CANCER METASTATIC
     Dosage: 100 mg, D1, D3, D5 of each cycle
     Route: 042
     Dates: start: 20091126, end: 20100819

REACTIONS (2)
  - Metastatic neoplasm [Not Recovered/Not Resolved]
  - Spinal cord compression [Not Recovered/Not Resolved]
